FAERS Safety Report 8535563-8 (Version None)
Quarter: 2012Q3

REPORT INFORMATION
  Report Type: 
  Country: None (occurrence: None)
  Receive Date: 20120725
  Receipt Date: 20120720
  Transmission Date: 20120928
  Serious: Yes (Life-Threatening, Hospitalization)
  Sender: FDA-Public Use
  Company Number: FR-CELGENEUS-056-22393-12063507

PATIENT
  Sex: Male
  Weight: 125 kg

DRUGS (11)
  1. FASTURTEC [Suspect]
     Indication: PROPHYLAXIS
     Route: 065
     Dates: start: 20120618
  2. VINCRISTINE [Concomitant]
     Indication: PERIPHERAL T-CELL LYMPHOMA UNSPECIFIED
     Route: 065
     Dates: start: 20120618
  3. DOXORUBICIN HCL [Concomitant]
     Indication: PERIPHERAL T-CELL LYMPHOMA UNSPECIFIED
     Route: 065
     Dates: start: 20120618
  4. PHENOXYMETHYL PENICILLIN [Concomitant]
     Indication: INFECTION PROPHYLAXIS
     Route: 065
  5. FOLIC ACID [Concomitant]
     Route: 065
  6. PREDNISONE [Concomitant]
     Indication: PERIPHERAL T-CELL LYMPHOMA UNSPECIFIED
     Route: 065
     Dates: start: 20120618
  7. FERROUS SULFATE TAB [Concomitant]
     Route: 065
  8. ISTODAX [Suspect]
     Indication: PERIPHERAL T-CELL LYMPHOMA UNSPECIFIED
     Dosage: 24 MILLIGRAM
     Route: 065
     Dates: start: 20120618
  9. RITUXIMAB [Concomitant]
     Indication: PERIPHERAL T-CELL LYMPHOMA UNSPECIFIED
     Route: 065
     Dates: start: 20120618
  10. INDAPAMIDE [Concomitant]
     Route: 065
     Dates: start: 20020501
  11. CYCLOPHOSPHAMIDE [Concomitant]
     Indication: PERIPHERAL T-CELL LYMPHOMA UNSPECIFIED
     Route: 065
     Dates: start: 20120618

REACTIONS (1)
  - HAEMOLYTIC ANAEMIA [None]
